FAERS Safety Report 17120588 (Version 1)
Quarter: 2019Q4

REPORT INFORMATION
  Report Type: Spontaneous
  Country: US (occurrence: US)
  Receive Date: 20191206
  Receipt Date: 20191206
  Transmission Date: 20200122
  Serious: No
  Sender: FDA-Public Use
  Company Number: NVSC2019US057058

PATIENT
  Age: 35 Year
  Sex: Female

DRUGS (2)
  1. VILAZODONE [Suspect]
     Active Substance: VILAZODONE
     Indication: DEPRESSION
     Dosage: UNK
     Route: 065
  2. BUPROPION. [Suspect]
     Active Substance: BUPROPION
     Indication: DEPRESSION
     Dosage: UNK
     Route: 065

REACTIONS (1)
  - Therapy non-responder [Recovered/Resolved]
